FAERS Safety Report 7994305-5 (Version None)
Quarter: 2011Q4

REPORT INFORMATION
  Report Type: 
  Country: None (occurrence: None)
  Receive Date: 20111220
  Receipt Date: 20111213
  Transmission Date: 20120403
  Serious: Yes (Death, Hospitalization)
  Sender: FDA-Public Use
  Company Number: CO-SANOFI-AVENTIS-2011SA079234

PATIENT
  Age: 91 Year
  Sex: Female

DRUGS (9)
  1. HALOPERIDOL [Concomitant]
     Indication: SEDATION
     Route: 048
  2. LOSARTAN POTASSIUM [Concomitant]
     Indication: HYPERTENSION
     Route: 048
  3. HYDROCHLOROTHIAZIDE [Concomitant]
     Route: 048
  4. ENOXAPARIN SODIUM [Suspect]
     Route: 058
     Dates: start: 20111110, end: 20111113
  5. TRAMADOL HCL [Concomitant]
     Route: 042
     Dates: start: 20111104, end: 20111104
  6. ENOXAPARIN SODIUM [Suspect]
     Route: 058
     Dates: start: 20111105, end: 20111109
  7. ENOXAPARIN SODIUM [Suspect]
     Route: 058
     Dates: start: 20111110, end: 20111113
  8. OMEPRAZOLE [Concomitant]
     Indication: PROPHYLAXIS
     Route: 048
  9. ENOXAPARIN SODIUM [Suspect]
     Route: 058
     Dates: start: 20111105, end: 20111109

REACTIONS (2)
  - COR PULMONALE [None]
  - PULMONARY EMBOLISM [None]
